FAERS Safety Report 7461307-7 (Version None)
Quarter: 2011Q2

REPORT INFORMATION
  Report Type: 
  Country: None (occurrence: None)
  Receive Date: 20110506
  Receipt Date: 20110428
  Transmission Date: 20111010
  Serious: No
  Sender: FDA-Public Use
  Company Number: US-BIOGENIDEC-2011BI016147

PATIENT
  Age: 44 Year
  Sex: Male

DRUGS (1)
  1. TYSABRI [Suspect]
     Indication: MULTIPLE SCLEROSIS
     Route: 042
     Dates: start: 20091215

REACTIONS (6)
  - PAIN IN EXTREMITY [None]
  - BONE PAIN [None]
  - ARTHRALGIA [None]
  - BACK PAIN [None]
  - MUSCULAR WEAKNESS [None]
  - WEIGHT INCREASED [None]
